FAERS Safety Report 25097270 (Version 3)
Quarter: 2025Q2

REPORT INFORMATION
  Report Type: Spontaneous
  Country: US (occurrence: US)
  Receive Date: 20250320
  Receipt Date: 20250514
  Transmission Date: 20250716
  Serious: Yes (Other)
  Sender: SANOFI AVENTIS
  Company Number: US-SA-2025SA079000

PATIENT
  Age: 66 Year
  Sex: Male
  Weight: 140.91 kg

DRUGS (19)
  1. DUPIXENT [Suspect]
     Active Substance: DUPILUMAB
     Indication: Dermatitis atopic
     Route: 058
  2. DUPIXENT [Suspect]
     Active Substance: DUPILUMAB
     Dosage: 300 MG, QOW
     Route: 058
  3. TRIAMCINOLONE ACETONIDE [Concomitant]
     Active Substance: TRIAMCINOLONE ACETONIDE
  4. ALFUZOSIN [Concomitant]
     Active Substance: ALFUZOSIN
  5. ELIQUIS [Concomitant]
     Active Substance: APIXABAN
  6. SERTRALINE [Concomitant]
     Active Substance: SERTRALINE HYDROCHLORIDE
  7. METOPROLOL SUCCINATE [Concomitant]
     Active Substance: METOPROLOL SUCCINATE
  8. OMEPRAZOLE [Concomitant]
     Active Substance: OMEPRAZOLE
  9. OXYCODONE [Concomitant]
     Active Substance: OXYCODONE
  10. ETHACRYNIC ACID [Concomitant]
     Active Substance: ETHACRYNIC ACID
  11. PREGABALIN [Concomitant]
     Active Substance: PREGABALIN
  12. ALPRAZOLAM [Concomitant]
     Active Substance: ALPRAZOLAM
  13. MOUNJARO [Concomitant]
     Active Substance: TIRZEPATIDE
  14. ATORVASTATIN CALCIUM [Concomitant]
     Active Substance: ATORVASTATIN CALCIUM
  15. MONTELUKAST SODIUM [Concomitant]
     Active Substance: MONTELUKAST SODIUM
  16. FLUTICASONE PROPIONATE [Concomitant]
     Active Substance: FLUTICASONE PROPIONATE
  17. AZITHROMYCIN [Concomitant]
     Active Substance: AZITHROMYCIN
  18. LISINOPRIL [Concomitant]
     Active Substance: LISINOPRIL
  19. METFORMIN HYDROCHLORIDE [Concomitant]
     Active Substance: METFORMIN HYDROCHLORIDE

REACTIONS (4)
  - Pneumonia moraxella [Not Recovered/Not Resolved]
  - Scratch [Unknown]
  - Skin haemorrhage [Unknown]
  - Inappropriate schedule of product administration [Unknown]
